FAERS Safety Report 8199293-7 (Version None)
Quarter: 2012Q1

REPORT INFORMATION
  Report Type: 
  Country: None (occurrence: None)
  Receive Date: 20120309
  Receipt Date: 20120305
  Transmission Date: 20120608
  Serious: Yes (Life-Threatening, Hospitalization)
  Sender: FDA-Public Use
  Company Number: JP-ASTRAZENECA-2008AP05625

PATIENT
  Age: 90 Year
  Sex: Female

DRUGS (7)
  1. LANSOPRAZOLE [Suspect]
     Route: 048
     Dates: start: 20000128, end: 20000828
  2. OMEPRAZOLE [Suspect]
     Route: 048
     Dates: start: 20011024, end: 20011211
  3. OMEPRAZOLE [Suspect]
     Route: 048
     Dates: start: 20061006, end: 20061029
  4. LANSOPRAZOLE [Suspect]
     Route: 048
     Dates: start: 20040414, end: 20050714
  5. LANSOPRAZOLE [Suspect]
     Route: 048
     Dates: start: 20020723, end: 20040413
  6. RABEPRAZOLE SODIUM [Suspect]
     Dosage: DOSE UNKNOWN
     Route: 048
     Dates: start: 20050726, end: 20051129
  7. OMEPRAZOLE [Suspect]
     Route: 048
     Dates: start: 20050715, end: 20050721

REACTIONS (11)
  - COLON CANCER [None]
  - GASTROOESOPHAGEAL REFLUX DISEASE [None]
  - RHABDOMYOLYSIS [None]
  - IRON DEFICIENCY ANAEMIA [None]
  - ARTERIOSCLEROSIS [None]
  - RENAL CYST [None]
  - DRUG ERUPTION [None]
  - SPINAL COMPRESSION FRACTURE [None]
  - PANCYTOPENIA [None]
  - EROSIVE OESOPHAGITIS [None]
  - CARDIAC HYPERTROPHY [None]
